FAERS Safety Report 6771653-8 (Version None)
Quarter: 2010Q2

REPORT INFORMATION
  Report Type: 
  Country: None (occurrence: None)
  Receive Date: 20100616
  Receipt Date: 20100609
  Transmission Date: 20101027
  Serious: Yes (Hospitalization, Other)
  Sender: FDA-Public Use
  Company Number: AT-AMGEN-KDC400594

PATIENT
  Sex: Male

DRUGS (2)
  1. DENOSUMAB [Suspect]
     Indication: BONE GIANT CELL TUMOUR
     Route: 058
     Dates: start: 20090217
  2. IBUMETIN [Concomitant]
     Route: 048
     Dates: start: 20100201

REACTIONS (3)
  - OSTEOMYELITIS [None]
  - OSTEONECROSIS OF JAW [None]
  - WOUND [None]
